FAERS Safety Report 9949680 (Version 1)
Quarter: 2014Q1

REPORT INFORMATION
  Report Type: Spontaneous
  Country: US (occurrence: US)
  Receive Date: 20140304
  Receipt Date: 20140304
  Transmission Date: 20141002
  Serious: No
  Sender: FDA-Public Use
  Company Number: US-PFIZER INC-2014060907

PATIENT
  Age: 66 Year
  Sex: Male

DRUGS (6)
  1. DAYPRO [Suspect]
     Dosage: UNK
  2. MOTRIN [Suspect]
     Dosage: UNK
  3. NIASPAN [Suspect]
     Dosage: UNK
  4. ZESTRIL [Suspect]
     Dosage: UNK
  5. GLUCOPHAGE [Suspect]
     Dosage: UNK
  6. LODINE [Suspect]
     Dosage: UNK

REACTIONS (1)
  - Drug hypersensitivity [Unknown]
